FAERS Safety Report 21194985 (Version 1)
Quarter: 2022Q3

REPORT INFORMATION
  Report Type: Spontaneous
  Country: US (occurrence: US)
  Receive Date: 20220810
  Receipt Date: 20220810
  Transmission Date: 20221026
  Serious: No
  Sender: FDA-Public Use
  Company Number: US-GSK-US2022AMR115382

PATIENT
  Sex: Female

DRUGS (2)
  1. FLUTICASONE PROPIONATE [Suspect]
     Active Substance: FLUTICASONE PROPIONATE
     Indication: Multiple allergies
     Dosage: 2 PUFF(S), QD 2 PUFF IN EACH NOSTRIL AT NIGHT
  2. FLUTICASONE FUROATE [Suspect]
     Active Substance: FLUTICASONE FUROATE
     Indication: Multiple allergies
     Dosage: 2 PUFF(S), QD 2 PUFF IN EACH NOSTRIL AT NIGHT

REACTIONS (1)
  - Product use in unapproved indication [Unknown]
